FAERS Safety Report 8370848-X (Version None)
Quarter: 2012Q2

REPORT INFORMATION
  Report Type: 
  Country: None (occurrence: None)
  Receive Date: 20120518
  Receipt Date: 20110624
  Transmission Date: 20120825
  Serious: No
  Sender: FDA-Public Use
  Company Number: US-ASTRAZENECA-2011SE46871

PATIENT
  Sex: Female

DRUGS (7)
  1. SIMVASTATIN [Concomitant]
     Dosage: UNKNOWN
  2. PREMARIN [Concomitant]
     Dosage: UNKNOWN
  3. FOSINOPRIL SODIUM [Concomitant]
     Dosage: UNKNOWN
  4. ATENOLOL [Concomitant]
     Dosage: UNKNOWN
  5. PRILOSEC OTC [Suspect]
     Route: 048
     Dates: start: 20110623, end: 20110624
  6. ZOLPIDEM [Concomitant]
     Dosage: UNKNOWN
  7. AMITRIPTYLINE HCL [Concomitant]
     Dosage: UNKNOWN

REACTIONS (1)
  - HAEMATOCHEZIA [None]
